FAERS Safety Report 25321062 (Version 1)
Quarter: 2025Q2

REPORT INFORMATION
  Report Type: Spontaneous
  Country: US (occurrence: US)
  Receive Date: 20250515
  Receipt Date: 20250515
  Transmission Date: 20250717
  Serious: No
  Sender: SANOFI AVENTIS
  Company Number: US-SA-2025SA137973

PATIENT
  Sex: Female

DRUGS (9)
  1. DUPIXENT [Suspect]
     Active Substance: DUPILUMAB
     Indication: Dermatitis atopic
     Dosage: 300 MG, QOW
     Route: 058
  2. BETAMETHASONE [Concomitant]
     Active Substance: BETAMETHASONE
  3. PANTOPRAZOLE [Concomitant]
     Active Substance: PANTOPRAZOLE
  4. PREDNISONE [Concomitant]
     Active Substance: PREDNISONE
  5. TRIAMCINOLONE [Concomitant]
     Active Substance: TRIAMCINOLONE
  6. AMLODIPINE BESYLATE [Concomitant]
     Active Substance: AMLODIPINE BESYLATE
  7. HYDROXYCHLOROQUINE [Concomitant]
     Active Substance: HYDROXYCHLOROQUINE
  8. MESALAMINE [Concomitant]
     Active Substance: MESALAMINE
  9. SUCRALFATE [Concomitant]
     Active Substance: SUCRALFATE

REACTIONS (7)
  - Rhinalgia [Unknown]
  - Productive cough [Unknown]
  - Conjunctival haemorrhage [Unknown]
  - Ocular hyperaemia [Unknown]
  - Insomnia [Unknown]
  - Headache [Unknown]
  - Dermatitis atopic [Unknown]
